FAERS Safety Report 11029397 (Version 1)
Quarter: 2015Q2

REPORT INFORMATION
  Report Type: Spontaneous
  Country: US (occurrence: US)
  Receive Date: 20150415
  Receipt Date: 20150415
  Transmission Date: 20150821
  Serious: No
  Sender: FDA-Public Use
  Company Number: US-ASTRAZENECA-2015SE31061

PATIENT
  Sex: Female
  Weight: 59 kg

DRUGS (9)
  1. PREDNISONE. [Concomitant]
     Active Substance: PREDNISONE
  2. ARMOURTHYROID [Concomitant]
     Indication: HYPOTHYROIDISM
  3. LEVAQUIN [Concomitant]
     Active Substance: LEVOFLOXACIN
  4. MUCINEX [Concomitant]
     Active Substance: GUAIFENESIN
  5. SYMBICORT [Suspect]
     Active Substance: BUDESONIDE\FORMOTEROL FUMARATE DIHYDRATE
     Indication: ASTHMA
     Dosage: 320 UG, TWO TIMES A DAY
     Route: 055
  6. VENTOLIN [Concomitant]
     Active Substance: ALBUTEROL SULFATE
  7. OTC COUGH MEDICINE [Concomitant]
  8. SYMBICORT [Suspect]
     Active Substance: BUDESONIDE\FORMOTEROL FUMARATE DIHYDRATE
     Indication: BRONCHITIS
     Dosage: 320 UG, TWO TIMES A DAY
     Route: 055
  9. TESSALORE [Concomitant]

REACTIONS (6)
  - Bronchitis [Not Recovered/Not Resolved]
  - Cough [Not Recovered/Not Resolved]
  - Drug ineffective [Not Recovered/Not Resolved]
  - Off label use [Not Recovered/Not Resolved]
  - Intentional product misuse [Not Recovered/Not Resolved]
  - Oral mucosal blistering [Not Recovered/Not Resolved]
